FAERS Safety Report 14156837 (Version 1)
Quarter: 2017Q4

REPORT INFORMATION
  Report Type: Spontaneous
  Country: IE (occurrence: IE)
  Receive Date: 20171103
  Receipt Date: 20171103
  Transmission Date: 20180321
  Serious: Yes (Other)
  Sender: FDA-Public Use
  Company Number: IE-BAYER-2017-208394

PATIENT
  Age: 69 Year
  Sex: Male

DRUGS (8)
  1. ASPIRIN. [Suspect]
     Active Substance: ASPIRIN
     Dosage: UNK
  2. ELTROXIN [Concomitant]
     Active Substance: LEVOTHYROXINE
     Indication: HYPOTHYROIDISM
     Dosage: UNK
     Dates: start: 1980
  3. GLUCOPHAGE [Concomitant]
     Active Substance: METFORMIN HYDROCHLORIDE
     Dosage: UNK
     Dates: start: 2003
  4. STATIN [Concomitant]
     Active Substance: UNSPECIFIED INGREDIENT
  5. SOMAVERT [Concomitant]
     Active Substance: PEGVISOMANT
     Indication: ACROMEGALY
     Dosage: 20 MG, UNK
     Dates: start: 2015
  6. NEXIUM [Concomitant]
     Active Substance: ESOMEPRAZOLE MAGNESIUM
     Dosage: 40 MG, UNK
     Dates: start: 2000
  7. DELTACORTRIL [PREDNISOLONE ACETATE] [Concomitant]
     Indication: ACROMEGALY
     Dosage: UNK
     Dates: start: 1980
  8. HYDROCORTISONE. [Concomitant]
     Active Substance: HYDROCORTISONE

REACTIONS (3)
  - Fall [None]
  - Subdural haematoma [None]
  - Cerebrovascular accident [None]

NARRATIVE: CASE EVENT DATE: 201611
